FAERS Safety Report 11653984 (Version 1)
Quarter: 2015Q4

REPORT INFORMATION
  Report Type: Spontaneous
  Country: CN (occurrence: CN)
  Receive Date: 20151023
  Receipt Date: 20151023
  Transmission Date: 20160304
  Serious: Yes (Hospitalization)
  Sender: FDA-Public Use
  Company Number: CN-ROCHE-1648436

PATIENT
  Age: 38 Year
  Sex: Male
  Weight: 58 kg

DRUGS (1)
  1. ROCEPHIN [Suspect]
     Active Substance: CEFTRIAXONE SODIUM
     Indication: GASTROENTERITIS
     Route: 041
     Dates: start: 20150511, end: 20150512

REACTIONS (1)
  - Alcohol intolerance [Recovered/Resolved]

NARRATIVE: CASE EVENT DATE: 20150512
